FAERS Safety Report 8138004-8 (Version None)
Quarter: 2012Q1

REPORT INFORMATION
  Report Type: 
  Country: None (occurrence: None)
  Receive Date: 20120215
  Receipt Date: 20120208
  Transmission Date: 20120608
  Serious: Yes (Other)
  Sender: FDA-Public Use
  Company Number: US-PFIZER INC-2012035649

PATIENT
  Sex: Male

DRUGS (2)
  1. DILANTIN [Suspect]
     Dosage: 300 MG, 2X/DAY (100 MG 3 BID)
  2. DEPAKOTE [Suspect]
     Dosage: 1000 MG, 2X/DAY (500 MG 2 BID)

REACTIONS (1)
  - GRAND MAL CONVULSION [None]
